FAERS Safety Report 5690167-X (Version None)
Quarter: 2008Q2

REPORT INFORMATION
  Report Type: 
  Country: None (occurrence: None)
  Receive Date: 20080401
  Receipt Date: 20080328
  Transmission Date: 20081010
  Serious: Yes (Hospitalization, Other)
  Sender: FDA-Public Use
  Company Number: AT-BAYER-200814573GPV

PATIENT
  Age: 45 Year
  Sex: Male

DRUGS (2)
  1. AVELOX [Suspect]
     Indication: PNEUMONIA
     Dosage: TOTAL DAILY DOSE: 800 MG  UNIT DOSE: 400 MG
     Route: 048
     Dates: start: 20080211, end: 20080220
  2. BENZODIAZEPINES [Concomitant]
     Indication: DRUG USE FOR UNKNOWN INDICATION
     Route: 065

REACTIONS (9)
  - ABASIA [None]
  - BURNING SENSATION [None]
  - DIZZINESS [None]
  - DRUG INTOLERANCE [None]
  - MUSCULOSKELETAL STIFFNESS [None]
  - PAIN [None]
  - PARKINSON'S DISEASE [None]
  - SENSORY DISTURBANCE [None]
  - TREMOR [None]
